FAERS Safety Report 19025640 (Version 1)
Quarter: 2021Q1

REPORT INFORMATION
  Report Type: Spontaneous
  Country: US (occurrence: US)
  Receive Date: 20210318
  Receipt Date: 20210318
  Transmission Date: 20210420
  Serious: Yes (Other)
  Sender: FDA-Public Use
  Company Number: US-BOIRON INC.-2021BOR00028

PATIENT
  Age: 73 Year
  Sex: Female

DRUGS (2)
  1. COLDCALM [Suspect]
     Active Substance: HOMEOPATHICS
     Indication: NASOPHARYNGITIS
     Dosage: 2 TABLETS EVERY 15 MINUTES FOR THE 1ST HOUR THEN TWICE
     Route: 060
     Dates: start: 20210306, end: 20210306
  2. UNSPECIFIED PRESCRIPTION MEDICATIONS [Concomitant]

REACTIONS (5)
  - Nausea [Recovering/Resolving]
  - Headache [Not Recovered/Not Resolved]
  - Gait disturbance [Recovering/Resolving]
  - Hallucination [Recovering/Resolving]
  - Dizziness [Recovering/Resolving]

NARRATIVE: CASE EVENT DATE: 20210306
